FAERS Safety Report 9176176 (Version 2)
Quarter: 2013Q4

REPORT INFORMATION
  Report Type: Spontaneous
  Country: GB (occurrence: GB)
  Receive Date: 20130321
  Receipt Date: 20131104
  Transmission Date: 20140711
  Serious: Yes (Life-Threatening)
  Sender: FDA-Public Use
  Company Number: PHHY2013GB026901

PATIENT
  Age: 60 Year
  Sex: Male
  Weight: 83 kg

DRUGS (5)
  1. TRAMADOL [Suspect]
     Indication: OSTEOARTHRITIS
     Dosage: LESS THAN OR EQUAL TO 150MG PER DAY
     Route: 048
     Dates: start: 20120910, end: 20120916
  2. TRAMADOL [Suspect]
     Dosage: 100-150MG
     Route: 048
     Dates: start: 20121022, end: 20121028
  3. PARACETAMOL [Concomitant]
     Dosage: 1 G, QID
  4. CODEINE PHOSPHATE [Concomitant]
     Dosage: 30 MG, QID
  5. ETORICOXIB [Concomitant]
     Dosage: 60 MG, QD

REACTIONS (19)
  - Peripheral circulatory failure [Recovered/Resolved]
  - Peripheral coldness [Recovered/Resolved]
  - Restless legs syndrome [Recovered/Resolved]
  - Libido increased [Recovered/Resolved]
  - Akathisia [Recovered/Resolved]
  - Malaise [Recovered/Resolved]
  - Rhinorrhoea [Recovered/Resolved]
  - Fear [Recovered/Resolved]
  - Chills [Recovered/Resolved]
  - Tension [Recovered/Resolved]
  - Abdominal pain [Recovered/Resolved]
  - Diarrhoea [Recovered/Resolved]
  - Somnolence [Recovered/Resolved]
  - Nausea [Recovered/Resolved]
  - Poor quality sleep [Recovered/Resolved]
  - Sleep disorder [Recovered/Resolved]
  - Hyperhidrosis [Recovered/Resolved]
  - Anxiety [Recovered/Resolved]
  - Withdrawal syndrome [Recovered/Resolved]
